FAERS Safety Report 9804397 (Version 1)
Quarter: 2014Q1

REPORT INFORMATION
  Report Type: Spontaneous
  Country: US (occurrence: US)
  Receive Date: 20140108
  Receipt Date: 20140108
  Transmission Date: 20141002
  Serious: No
  Sender: FDA-Public Use
  Company Number: US-VERTEX PHARMACEUTICALS INC-2014-000066

PATIENT
  Age: 57 Year
  Sex: Male
  Weight: 83.45 kg

DRUGS (3)
  1. INCIVEK [Suspect]
     Indication: HEPATITIS C
     Dosage: 3 DF, BID
     Route: 048
     Dates: start: 20131112, end: 20131229
  2. RIBAVIRIN [Suspect]
     Indication: HEPATITIS C
     Dosage: 2 DF, TID
     Route: 048
     Dates: start: 20131112, end: 20131229
  3. PEGASYS [Suspect]
     Indication: HEPATITIS C
     Dosage: 180 ?G, QW
     Route: 058
     Dates: start: 20131112, end: 20131229

REACTIONS (4)
  - Staphylococcal infection [Not Recovered/Not Resolved]
  - Swelling [Not Recovered/Not Resolved]
  - Skin lesion [Not Recovered/Not Resolved]
  - Rash erythematous [Not Recovered/Not Resolved]
